FAERS Safety Report 9439325 (Version 2)
Quarter: 2013Q3

REPORT INFORMATION
  Report Type: Spontaneous
  Country: JP (occurrence: JP)
  Receive Date: 20130804
  Receipt Date: 20130917
  Transmission Date: 20140515
  Serious: Yes (Hospitalization)
  Sender: FDA-Public Use
  Company Number: JP-ROCHE-1255468

PATIENT
  Age: 32 Year
  Sex: Male
  Weight: 67 kg

DRUGS (2)
  1. AVASTIN [Suspect]
     Indication: MALIGNANT GLIOMA
     Route: 041
     Dates: start: 20130621
  2. ALEVIATIN [Concomitant]
     Indication: PROPHYLAXIS
     Route: 048
     Dates: start: 20130415

REACTIONS (1)
  - Cerebrospinal fluid leakage [Recovered/Resolved]
